FAERS Safety Report 23894860 (Version 1)
Quarter: 2024Q2

REPORT INFORMATION
  Report Type: Spontaneous
  Country: US (occurrence: None)
  Receive Date: 20240524
  Receipt Date: 20240524
  Transmission Date: 20240716
  Serious: No
  Sender: FDA-Public Use
  Company Number: US-ROCHE-3335348

PATIENT
  Age: 82 Year
  Sex: Female
  Weight: 82.628 kg

DRUGS (13)
  1. ACTEMRA [Suspect]
     Active Substance: TOCILIZUMAB
     Indication: Giant cell arteritis
     Dosage: STRENGTH: 162MG/0.9ML
     Route: 058
     Dates: start: 20230307, end: 20230418
  2. ACTEMRA [Suspect]
     Active Substance: TOCILIZUMAB
  3. ACTEMRA [Suspect]
     Active Substance: TOCILIZUMAB
     Dosage: STRENGTH: 162MG/0.9ML
     Route: 058
     Dates: start: 20230328
  4. ACTEMRA [Suspect]
     Active Substance: TOCILIZUMAB
  5. PREDNISONE [Suspect]
     Active Substance: PREDNISONE
     Indication: Autoimmune hepatitis
     Route: 065
     Dates: start: 20230427
  6. PREDNISONE [Suspect]
     Active Substance: PREDNISONE
     Indication: Inflammation
     Route: 065
  7. IMURAN [Concomitant]
     Active Substance: AZATHIOPRINE
     Indication: Autoimmune hepatitis
     Dates: start: 202301
  8. IMURAN [Concomitant]
     Active Substance: AZATHIOPRINE
  9. IMURAN [Concomitant]
     Active Substance: AZATHIOPRINE
     Dates: start: 2001
  10. LEVOTHYROXINE [Concomitant]
     Active Substance: LEVOTHYROXINE\LEVOTHYROXINE SODIUM
     Route: 048
  11. PREVACID [Concomitant]
     Active Substance: LANSOPRAZOLE
     Indication: Hiatus hernia
     Route: 048
     Dates: start: 1986
  12. PREVACID [Concomitant]
     Active Substance: LANSOPRAZOLE
     Indication: Ulcer
  13. SPIRONOLACTONE [Concomitant]
     Active Substance: SPIRONOLACTONE

REACTIONS (14)
  - Pruritus [Recovered/Resolved]
  - Erythema [Not Recovered/Not Resolved]
  - Urticaria [Unknown]
  - Swelling [Recovering/Resolving]
  - Pain [Unknown]
  - Injection site pain [Unknown]
  - Discomfort [Unknown]
  - Product complaint [Unknown]
  - Accidental exposure to product [Unknown]
  - Blood immunoglobulin G increased [Unknown]
  - Blood immunoglobulin M increased [Unknown]
  - Red blood cell sedimentation rate increased [Unknown]
  - Drug ineffective [Unknown]
  - Syringe issue [Unknown]

NARRATIVE: CASE EVENT DATE: 20230328
